FAERS Safety Report 5524422-0 (Version None)
Quarter: 2007Q4

REPORT INFORMATION
  Report Type: 
  Country: None (occurrence: None)
  Receive Date: 20071122
  Receipt Date: 20071113
  Transmission Date: 20080405
  Serious: Yes (Hospitalization)
  Sender: FDA-Public Use
  Company Number: FR-PFIZER INC-2007097416

PATIENT
  Age: 40 Year
  Sex: Male

DRUGS (6)
  1. CHAMPIX [Suspect]
  2. TAHOR [Concomitant]
  3. EZETROL [Concomitant]
     Dosage: TEXT:10
  4. QUESTRAN [Concomitant]
  5. LAROXYL [Concomitant]
  6. EFFEXOR [Concomitant]

REACTIONS (1)
  - CYTOLYTIC HEPATITIS [None]
